FAERS Safety Report 4306884-X (Version None)
Quarter: 2004Q1

REPORT INFORMATION
  Report Type: 
  Country: None (occurrence: None)
  Receive Date: 20040227
  Receipt Date: 20040217
  Transmission Date: 20041129
  Serious: Yes (Hospitalization)
  Sender: FDA-Public Use
  Company Number: FR-GLAXOSMITHKLINE-B0323578A

PATIENT
  Age: 63 Year
  Sex: Female
  Weight: 55 kg

DRUGS (3)
  1. HYCAMTIN [Suspect]
     Indication: OVARIAN CANCER
     Dosage: 4MG PER DAY
     Route: 042
     Dates: start: 20040106, end: 20040113
  2. TAXOL [Suspect]
     Indication: OVARIAN CANCER
     Dosage: 128MG PER DAY
     Route: 042
     Dates: start: 20040106
  3. CARBOPLATINE [Suspect]
     Indication: OVARIAN CANCER
     Dosage: 400MG PER DAY
     Route: 042
     Dates: start: 20040106

REACTIONS (3)
  - AGRANULOCYTOSIS [None]
  - LEUKOPENIA [None]
  - THROMBOCYTOPENIA [None]
